FAERS Safety Report 5514046-3 (Version None)
Quarter: 2007Q4

REPORT INFORMATION
  Report Type: 
  Country: None (occurrence: None)
  Receive Date: 20071113
  Receipt Date: 20071030
  Transmission Date: 20080405
  Serious: Yes (Other)
  Sender: FDA-Public Use
  Company Number: US-ELI_LILLY_AND_COMPANY-US200709002494

PATIENT
  Sex: Female

DRUGS (5)
  1. FORTEO [Suspect]
     Dosage: UNK, UNK
     Dates: start: 20070320
  2. FORTEO [Suspect]
     Dosage: UNK, UNK
  3. VIOXX [Concomitant]
     Indication: ARTHRITIS
  4. CELEBREX [Concomitant]
     Indication: ARTHRITIS
  5. ALEVE [Concomitant]
     Indication: ARTHRITIS

REACTIONS (13)
  - ARTHRALGIA [None]
  - BACK DISORDER [None]
  - CERVICAL SPINAL STENOSIS [None]
  - FALL [None]
  - FEELING ABNORMAL [None]
  - GAIT DISTURBANCE [None]
  - HAND DEFORMITY [None]
  - MALAISE [None]
  - MOBILITY DECREASED [None]
  - PAIN IN EXTREMITY [None]
  - PELVIC FRACTURE [None]
  - POOR QUALITY SLEEP [None]
  - SOMNOLENCE [None]
